FAERS Safety Report 8999940 (Version 1)
Quarter: 2013Q1

REPORT INFORMATION
  Report Type: Spontaneous
  Country: JP (occurrence: JP)
  Receive Date: 20130102
  Receipt Date: 20130102
  Transmission Date: 20140127
  Serious: Yes (Death, Other)
  Sender: FDA-Public Use
  Company Number: JP-JNJFOC-20121213364

PATIENT
  Sex: 0

DRUGS (5)
  1. DOXORUBICIN [Suspect]
     Indication: HODGKIN^S DISEASE
     Route: 042
  2. DOXORUBICIN [Suspect]
     Indication: HODGKIN^S DISEASE
     Route: 042
  3. BLEOMYCIN [Suspect]
     Indication: HODGKIN^S DISEASE
     Dosage: UPPER LIMIT, 15 MG TOTAL
     Route: 042
  4. VINBLASTINE [Suspect]
     Indication: HODGKIN^S DISEASE
     Dosage: UPPER LIMIT, 15 MG TOTAL
     Route: 042
  5. RADIATION THERAPY [Suspect]
     Indication: HODGKIN^S DISEASE
     Dosage: UPPER LIMIT, 15 MG TOTAL
     Route: 065

REACTIONS (19)
  - Death [Fatal]
  - Leukopenia [Unknown]
  - Arrhythmia [Unknown]
  - Neutropenia [Unknown]
  - Diffuse large B-cell lymphoma [Unknown]
  - Anaemia [Unknown]
  - Hypoxia [Unknown]
  - Neuropathy peripheral [Unknown]
  - Hodgkin^s disease [Unknown]
  - Alanine aminotransferase increased [Unknown]
  - Thrombocytopenia [Unknown]
  - Aspartate aminotransferase increased [Unknown]
  - Blood creatinine increased [Unknown]
  - Diarrhoea [Unknown]
  - Stomatitis [Unknown]
  - Oesophagitis [Unknown]
  - Pharyngitis [Unknown]
  - Pyrexia [Unknown]
  - Drug effect incomplete [Unknown]
